FAERS Safety Report 24094521 (Version 1)
Quarter: 2024Q3

REPORT INFORMATION
  Report Type: Spontaneous
  Country: US (occurrence: US)
  Receive Date: 20240716
  Receipt Date: 20240716
  Transmission Date: 20241017
  Serious: Yes (Other)
  Sender: DR REDDYS
  Company Number: US-DRL-USA-LIT/USA/24/0010271

PATIENT
  Age: 76 Year
  Sex: Female

DRUGS (11)
  1. TACROLIMUS [Suspect]
     Active Substance: TACROLIMUS
     Indication: Lichen planus
  2. MYCOPHENOLATE MOFETIL [Concomitant]
     Active Substance: MYCOPHENOLATE MOFETIL
     Indication: Lichen planus
  3. METHOTREXATE [Concomitant]
     Active Substance: METHOTREXATE
     Indication: Lichen planus
  4. HYDROXYCHLOROQUINE [Concomitant]
     Active Substance: HYDROXYCHLOROQUINE
     Indication: Lichen planus
  5. ADALIMUMAB [Concomitant]
     Active Substance: ADALIMUMAB\ISOPROPYL ALCOHOL
     Indication: Lichen planus
  6. USTEKINUMAB [Concomitant]
     Active Substance: USTEKINUMAB
     Indication: Lichen planus
  7. NALTREXONE [Concomitant]
     Active Substance: NALTREXONE
     Indication: Lichen planus
  8. ETANERCEPT [Concomitant]
     Active Substance: ETANERCEPT
     Indication: Lichen planus
  9. DAPSONE [Concomitant]
     Active Substance: DAPSONE
     Indication: Lichen planus
  10. IXEKIZUMAB [Concomitant]
     Active Substance: IXEKIZUMAB
     Indication: Lichen planus
  11. TACROLIMUS [Concomitant]
     Active Substance: TACROLIMUS
     Indication: Lichen planus
     Route: 061

REACTIONS (1)
  - Drug ineffective for unapproved indication [Unknown]
